FAERS Safety Report 9668099 (Version 2)
Quarter: 2014Q3

REPORT INFORMATION
  Report Type: Spontaneous
  Country: US (occurrence: None)
  Receive Date: 20131101
  Receipt Date: 20140804
  Transmission Date: 20150326
  Serious: Yes (Death)
  Sender: FDA-Public Use
  Company Number: 1224850-2013-0003

PATIENT
  Age: 68 Year
  Sex: Male
  Weight: 110 kg

DRUGS (3)
  1. DELFEX PD SOLUTION [Concomitant]
  2. PHOSLO [Suspect]
     Active Substance: CALCIUM ACETATE
     Indication: HYPERPHOSPHATAEMIA
     Dosage: 667MG 3 WITH MEALS/ PO
     Route: 048
     Dates: start: 20131008, end: 20131009
  3. LIBERTY CYCLER SET [Concomitant]

REACTIONS (3)
  - Unresponsive to stimuli [None]
  - Fatigue [None]
  - Sudden death [None]

NARRATIVE: CASE EVENT DATE: 20131009
